FAERS Safety Report 6074912-X (Version None)
Quarter: 2009Q1

REPORT INFORMATION
  Report Type: 
  Country: None (occurrence: None)
  Receive Date: 20090210
  Receipt Date: 20090126
  Transmission Date: 20090719
  Serious: Yes (Death, Other)
  Sender: FDA-Public Use
  Company Number: A-NJ2008-19310

PATIENT
  Age: 70 Year
  Sex: Male
  Weight: 81.6 kg

DRUGS (1)
  1. TRACLEER [Suspect]
     Indication: PULMONARY HYPERTENSION
     Dosage: 62.5 MG, BID, ORAL
     Route: 048
     Dates: start: 20061103, end: 20081218

REACTIONS (5)
  - HEPATIC LESION [None]
  - PANCREATIC CARCINOMA [None]
  - PYREXIA [None]
  - VIRAL INFECTION [None]
  - VOMITING [None]
